FAERS Safety Report 12105796 (Version 1)
Quarter: 2016Q1

REPORT INFORMATION
  Report Type: Spontaneous
  Country: US (occurrence: US)
  Receive Date: 20160223
  Receipt Date: 20160223
  Transmission Date: 20160526
  Serious: No
  Sender: FDA-Public Use
  Company Number: GXBR2015US002376

PATIENT
  Age: 65 Year
  Sex: Male
  Weight: 81.63 kg

DRUGS (7)
  1. ASPIRIN ^BAYER^ [Concomitant]
     Active Substance: ASPIRIN
     Dosage: UNK DF, UNK
  2. PRILOSEC [Concomitant]
     Active Substance: OMEPRAZOLE MAGNESIUM
     Indication: GASTROOESOPHAGEAL REFLUX DISEASE
     Dosage: UNK DF, UNK
  3. DESIPRAMINE HCL TABLETS USP [Suspect]
     Active Substance: DESIPRAMINE HYDROCHLORIDE
     Indication: NAUSEA
     Dosage: 10 MG, QHS
     Route: 048
  4. DESIPRAMINE HCL TABLETS USP [Suspect]
     Active Substance: DESIPRAMINE HYDROCHLORIDE
     Indication: OESOPHAGEAL SPASM
  5. ATENOLOL. [Concomitant]
     Active Substance: ATENOLOL
     Indication: HYPERTENSION
     Dosage: UNK DF, UNK
  6. DESIPRAMINE HCL TABLETS USP [Suspect]
     Active Substance: DESIPRAMINE HYDROCHLORIDE
     Indication: PAIN IN JAW
  7. INVOKANA [Concomitant]
     Active Substance: CANAGLIFLOZIN
     Indication: DIABETES MELLITUS
     Dosage: UNK DF, UNK

REACTIONS (3)
  - Product use issue [Not Recovered/Not Resolved]
  - Nausea [Not Recovered/Not Resolved]
  - Drug ineffective for unapproved indication [Not Recovered/Not Resolved]

NARRATIVE: CASE EVENT DATE: 201510
